FAERS Safety Report 15317815 (Version 11)
Quarter: 2024Q4

REPORT INFORMATION
  Report Type: Report from Study
  Country: US (occurrence: US)
  Receive Date: 20180824
  Receipt Date: 20241217
  Transmission Date: 20250114
  Serious: Yes (Hospitalization, Other)
  Sender: TAKEDA
  Company Number: US-ARIAD PHARMACEUTICALS, INC-2017US008804

PATIENT
  Sex: Male

DRUGS (8)
  1. PONATINIB [Suspect]
     Active Substance: PONATINIB
     Indication: Chronic myeloid leukaemia
     Dosage: 15 MILLIGRAM, QD
     Dates: start: 20160420
  2. PONATINIB [Suspect]
     Active Substance: PONATINIB
     Indication: Pancytopenia
     Dosage: 15 MILLIGRAM, QD
  3. PONATINIB [Suspect]
     Active Substance: PONATINIB
     Dosage: 30 MILLIGRAM, QD
  4. PONATINIB [Suspect]
     Active Substance: PONATINIB
     Dosage: 30 MILLIGRAM, QD
  5. TYLENOL [Concomitant]
     Active Substance: ACETAMINOPHEN
     Dosage: UNK
  6. TYLENOL WITH CODEINE [Concomitant]
     Active Substance: ACETAMINOPHEN\CODEINE PHOSPHATE
     Dosage: UNK
  7. OMEPRAZOLE [Concomitant]
     Active Substance: OMEPRAZOLE
     Dosage: UNK
  8. TAMSULOSIN HYDROCHLORIDE [Concomitant]
     Active Substance: TAMSULOSIN HYDROCHLORIDE
     Dosage: UNK

REACTIONS (15)
  - Erectile dysfunction [Unknown]
  - Papule [Unknown]
  - Lip dry [Unknown]
  - Product use issue [Unknown]
  - Blood pressure increased [Unknown]
  - Bone pain [Unknown]
  - Dry skin [Unknown]
  - Pain in extremity [Unknown]
  - Back pain [Unknown]
  - Dyspnoea [Unknown]
  - Pain [Unknown]
  - Blister [Unknown]
  - Tinea infection [Unknown]
  - Urticaria [Unknown]
  - Product dose omission issue [Unknown]
